FAERS Safety Report 10662826 (Version 3)
Quarter: 2015Q1

REPORT INFORMATION
  Report Type: Report from Study
  Country: US (occurrence: US)
  Receive Date: 20141218
  Receipt Date: 20150310
  Transmission Date: 20150720
  Serious: Yes (Death, Disabling, Congenital Anomaly, Other)
  Sender: FDA-Public Use
  Company Number: US-GILEAD-2014-0127543

PATIENT
  Sex: Female
  Weight: 3.1 kg

DRUGS (1)
  1. EFAVIRENZ/EMTRICITABINE/TENOFOVIR DISOPROXIL FUMARATE [Suspect]
     Active Substance: EFAVIRENZ\EMTRICITABINE\TENOFOVIR DISOPROXIL FUMARATE
     Indication: HIV INFECTION
     Dosage: UNK, QD
     Route: 064
     Dates: start: 20140620, end: 20140710

REACTIONS (3)
  - Foetal exposure during pregnancy [Recovered/Resolved]
  - Death [Fatal]
  - Foetal malformation [Unknown]

NARRATIVE: CASE EVENT DATE: 20140620
